FAERS Safety Report 16972705 (Version 1)
Quarter: 2019Q4

REPORT INFORMATION
  Report Type: Spontaneous
  Country: IT (occurrence: IT)
  Receive Date: 20191030
  Receipt Date: 20191030
  Transmission Date: 20200122
  Serious: Yes (Other)
  Sender: FDA-Public Use
  Company Number: IT-AMGEN-ITASP2019175296

PATIENT
  Age: 66 Year
  Sex: Male

DRUGS (3)
  1. KANJINTI [Suspect]
     Active Substance: TRASTUZUMAB-ANNS
     Indication: ADENOCARCINOMA GASTRIC
     Dosage: 418 MILLIGRAM
     Route: 042
     Dates: start: 20190827, end: 20190827
  2. FLUOROURACILE [Concomitant]
     Active Substance: FLUOROURACIL
     Dosage: 5688 MILLIGRAM
     Route: 042
     Dates: start: 20190716
  3. CISPLATIN. [Concomitant]
     Active Substance: CISPLATIN
     Dosage: 118 MILLIGRAM
     Route: 042
     Dates: start: 20190716

REACTIONS (2)
  - Hyperpyrexia [Recovered/Resolved]
  - Infusion related reaction [Recovered/Resolved]

NARRATIVE: CASE EVENT DATE: 20190827
